FAERS Safety Report 4284555-6 (Version None)
Quarter: 2004Q1

REPORT INFORMATION
  Report Type: 
  Country: None (occurrence: None)
  Receive Date: 20040130
  Receipt Date: 20010123
  Transmission Date: 20041129
  Serious: Yes (Hospitalization)
  Sender: FDA-Public Use
  Company Number: 2004-00059FE

PATIENT
  Age: 16 Year
  Sex: Male

DRUGS (1)
  1. PENTASA [Suspect]
     Indication: COLITIS ULCERATIVE
     Dosage: UNK; ORALLY
     Route: 048
     Dates: start: 20011001

REACTIONS (3)
  - BACK PAIN [None]
  - CONDITION AGGRAVATED [None]
  - PAIN IN EXTREMITY [None]
